FAERS Safety Report 5033701-5 (Version None)
Quarter: 2006Q2

REPORT INFORMATION
  Report Type: 
  Country: None (occurrence: None)
  Receive Date: 20060620
  Receipt Date: 20060602
  Transmission Date: 20061013
  Serious: Yes (Hospitalization)
  Sender: FDA-Public Use
  Company Number: JP200606001231

PATIENT
  Age: 68 Year
  Sex: Male
  Weight: 62.1 kg

DRUGS (6)
  1. LISPRO (LISPRO 25LIS75NPL) PEN, DISPONSABLE [Suspect]
     Indication: DIABETES MELLITUS NON-INSULIN-DEPENDENT
     Dosage: SEE IMAGE
     Dates: start: 20051206, end: 20051208
  2. LISPRO (LISPRO 25LIS75NPL) PEN, DISPONSABLE [Suspect]
     Indication: DIABETES MELLITUS NON-INSULIN-DEPENDENT
     Dosage: SEE IMAGE
     Dates: start: 20051206, end: 20051208
  3. LISPRO (LISPRO 25LIS75NPL) PEN, DISPONSABLE [Suspect]
     Indication: DIABETES MELLITUS NON-INSULIN-DEPENDENT
     Dosage: SEE IMAGE
     Dates: start: 20051209, end: 20051214
  4. LISPRO (LISPRO 25LIS75NPL) PEN, DISPONSABLE [Suspect]
     Indication: DIABETES MELLITUS NON-INSULIN-DEPENDENT
     Dosage: SEE IMAGE
     Dates: start: 20051215, end: 20051219
  5. LISPRO (LISPRO 25LIS75NPL) PEN, DISPONSABLE [Suspect]
     Indication: DIABETES MELLITUS NON-INSULIN-DEPENDENT
     Dosage: SEE IMAGE
     Dates: start: 20051220, end: 20060322
  6. HUMALOG MIX [Concomitant]

REACTIONS (3)
  - HEPATITIS C [None]
  - INJECTION SITE ERYTHEMA [None]
  - INJECTION SITE PRURITUS [None]
